FAERS Safety Report 13438788 (Version 2)
Quarter: 2017Q3

REPORT INFORMATION
  Report Type: Report from Study
  Country: CA (occurrence: CA)
  Receive Date: 20170412
  Receipt Date: 20170728
  Transmission Date: 20171127
  Serious: Yes (Other)
  Sender: FDA-Public Use
  Company Number: PHHY2017CA052989

PATIENT
  Age: 59 Year
  Sex: Male

DRUGS (2)
  1. HYDROCHLOROTHIAZIDE SANDOZ [Suspect]
     Active Substance: HYDROCHLOROTHIAZIDE
     Indication: OEDEMA DUE TO CARDIAC DISEASE
     Dosage: 2.5 MG, QD
     Route: 048
     Dates: start: 20170113
  2. VENTOLIN [Concomitant]
     Active Substance: ALBUTEROL SULFATE
     Indication: ASTHMA
     Dosage: 2 DF, QD
     Route: 065

REACTIONS (2)
  - Product quality issue [Unknown]
  - Pulmonary function test increased [Unknown]

NARRATIVE: CASE EVENT DATE: 20170324
